FAERS Safety Report 13496765 (Version 1)
Quarter: 2017Q2

REPORT INFORMATION
  Report Type: Spontaneous
  Country: NL (occurrence: NL)
  Receive Date: 20170428
  Receipt Date: 20170428
  Transmission Date: 20170830
  Serious: Yes (Death)
  Sender: FDA-Public Use
  Company Number: NL-PFIZER INC-2017177242

PATIENT

DRUGS (3)
  1. ALPROSTADIL. [Suspect]
     Active Substance: ALPROSTADIL
     Indication: HETEROTAXIA
  2. ALPROSTADIL. [Suspect]
     Active Substance: ALPROSTADIL
     Indication: CONGENITAL ARTERIAL MALFORMATION
  3. ALPROSTADIL. [Suspect]
     Active Substance: ALPROSTADIL
     Indication: CONGENITAL PULMONARY VALVE ATRESIA
     Dosage: 0.1 UG/KG, 0.1UG/KG PER MIN FOR 3 DAYS
     Route: 041

REACTIONS (1)
  - Angiopathy [Fatal]
